FAERS Safety Report 6099788-6 (Version None)
Quarter: 2009Q1

REPORT INFORMATION
  Report Type: 
  Country: None (occurrence: None)
  Receive Date: 20090303
  Receipt Date: 20090218
  Transmission Date: 20090719
  Serious: Yes (Other)
  Sender: FDA-Public Use
  Company Number: PHEH2009US01871

PATIENT
  Sex: Female

DRUGS (2)
  1. VIVELLE-DOT [Suspect]
     Dosage: 0.025 MG, UNK
     Route: 062
     Dates: start: 20071001
  2. VIVELLE-DOT [Suspect]
     Dosage: 0.05 MG/UNK
     Route: 062

REACTIONS (3)
  - HYSTERECTOMY [None]
  - MYALGIA [None]
  - NEURALGIA [None]
